FAERS Safety Report 18341472 (Version 3)
Quarter: 2020Q4

REPORT INFORMATION
  Report Type: Spontaneous
  Country: PT (occurrence: PT)
  Receive Date: 20201004
  Receipt Date: 20201221
  Transmission Date: 20210113
  Serious: Yes (Other)
  Sender: FDA-Public Use
  Company Number: PT-SA-2020SA267793

PATIENT

DRUGS (11)
  1. ESOMEPRAZOLE. [Concomitant]
     Active Substance: ESOMEPRAZOLE MAGNESIUM
     Indication: GASTRIC DISORDER
     Dosage: 20 MG, QD(MORNING )
     Route: 065
  2. LANTUS [Suspect]
     Active Substance: INSULIN GLARGINE
     Indication: DIABETES MELLITUS
     Dosage: 3 TO 4 UNITS AT BREAKFAST AND AT BEDTIME (IF SHE EATS SUPPER), BID
     Route: 065
     Dates: start: 201708
  3. MEMANTINE. [Concomitant]
     Active Substance: MEMANTINE
     Indication: DEMENTIA
     Dosage: 20 MG, QD(MORNING )
     Route: 065
  4. Q10 FORTE [Concomitant]
     Dosage: 100 MG, QD
  5. MULTIVITAMIN [ASCORBIC ACID;COLECALCIFEROL;DEXPANTHENOL;NICOTINAMIDE;P [Concomitant]
     Dosage: 1 DF, QD
  6. LANTUS [Suspect]
     Active Substance: INSULIN GLARGINE
     Dosage: 4 IU OF LANTUS IN THE MORNING ON AN EMPTY STOMACH + 4 IU IN THE EVENING AFTER DINNER, BID
     Route: 065
  7. GALVUS [Suspect]
     Active Substance: VILDAGLIPTIN
     Indication: DIABETES MELLITUS
     Dosage: 50 MG, QD (AFTER LUNCH)
     Route: 065
     Dates: start: 201707
  8. LEVOTHYROXINE SODIUM. [Concomitant]
     Active Substance: LEVOTHYROXINE SODIUM
     Indication: HYPOTHYROIDISM
     Dosage: 50 UG, QD(MORNING)
     Route: 065
  9. BETAHISTINE [Concomitant]
     Active Substance: BETAHISTINE
     Dosage: 24 MG, BID(MORNING AND AT DINNER)
     Route: 065
  10. RIVASTIGMINE. [Concomitant]
     Active Substance: RIVASTIGMINE
     Indication: DEMENTIA
     Dosage: 4.5 MG, BID( MORNING AND AT DINNER)
     Route: 065
  11. MIRTAZAPINE. [Concomitant]
     Active Substance: MIRTAZAPINE
     Dosage: 30 MG, HS
     Route: 065
     Dates: start: 20160314

REACTIONS (6)
  - Inappropriate schedule of product administration [Unknown]
  - Cardio-respiratory arrest [Recovered/Resolved]
  - Sepsis [Unknown]
  - Anaemia [Unknown]
  - Thrombocytopenia [Recovering/Resolving]
  - Respiratory arrest [Unknown]

NARRATIVE: CASE EVENT DATE: 2017
